FAERS Safety Report 6534575-3 (Version None)
Quarter: 2010Q1

REPORT INFORMATION
  Report Type: 
  Country: None (occurrence: None)
  Receive Date: 20100112
  Receipt Date: 20100111
  Transmission Date: 20100710
  Serious: Yes (Hospitalization)
  Sender: FDA-Public Use
  Company Number: A0802633A

PATIENT
  Age: 38 Year
  Sex: Male
  Weight: 112.7 kg

DRUGS (1)
  1. AVANDIA [Suspect]
     Indication: DIABETES MELLITUS
     Route: 048
     Dates: start: 20041208, end: 20070525

REACTIONS (1)
  - MYOCARDIAL INFARCTION [None]
